FAERS Safety Report 17073038 (Version 1)
Quarter: 2019Q4

REPORT INFORMATION
  Report Type: Spontaneous
  Country: KP (occurrence: KP)
  Receive Date: 20191025
  Receipt Date: 20191025
  Transmission Date: 20200122
  Serious: Yes (Hospitalization)
  Sender: FDA-Public Use
  Company Number: None

PATIENT
  Age: 72 Year
  Sex: Female
  Weight: 54 kg

DRUGS (1)
  1. CISPLATIN. [Suspect]
     Active Substance: CISPLATIN
     Dates: end: 20190221

REACTIONS (5)
  - Asthenia [None]
  - Blood sodium decreased [None]
  - Blood potassium increased [None]
  - Hypophagia [None]
  - Body temperature increased [None]

NARRATIVE: CASE EVENT DATE: 20190315
